FAERS Safety Report 21532487 (Version 2)
Quarter: 2022Q4

REPORT INFORMATION
  Report Type: Spontaneous
  Country: FR (occurrence: FR)
  Receive Date: 20221101
  Receipt Date: 20221219
  Transmission Date: 20230112
  Serious: Yes (Other)
  Sender: FDA-Public Use
  Company Number: FR-NOVARTISPH-NVSC2022FR216468

PATIENT
  Age: 68 Year
  Sex: Male

DRUGS (6)
  1. VALACYCLOVIR HYDROCHLORIDE [Suspect]
     Active Substance: VALACYCLOVIR HYDROCHLORIDE
     Indication: Herpes virus infection
     Dosage: 500 MG, BID
     Route: 048
     Dates: start: 20220826, end: 20220901
  2. TARKA [Concomitant]
     Active Substance: TRANDOLAPRIL\VERAPAMIL HYDROCHLORIDE
     Indication: Hypertension
     Dosage: 180 UNK
     Route: 065
     Dates: start: 2018
  3. OMEPRAZOLE [Concomitant]
     Active Substance: OMEPRAZOLE
     Indication: Abdominal pain upper
     Dosage: 1 DOSAGE FORM, QD (DOSE UNIT =20)
     Route: 065
     Dates: start: 2012
  4. HYDROCORTISONE [Concomitant]
     Active Substance: HYDROCORTISONE
     Indication: Pituitary tumour
     Dosage: 30 MG, QD
     Route: 065
     Dates: start: 2020
  5. OXYCONTIN [Concomitant]
     Active Substance: OXYCODONE HYDROCHLORIDE
     Indication: Spinal pain
     Dosage: 40 MG, QD (STARTED SINCE LONG TIME)
     Route: 065
  6. BRINTELLIX [Concomitant]
     Active Substance: VORTIOXETINE HYDROBROMIDE
     Indication: Depression
     Dosage: 1 DOSAGE FORM, QD (UNIT DOSE 10)
     Route: 065
     Dates: start: 202202

REACTIONS (5)
  - Amnesia [Recovering/Resolving]
  - Pain in extremity [Not Recovered/Not Resolved]
  - Musculoskeletal chest pain [Not Recovered/Not Resolved]
  - Abdominal pain lower [Not Recovered/Not Resolved]
  - Back pain [Not Recovered/Not Resolved]

NARRATIVE: CASE EVENT DATE: 20220828
